FAERS Safety Report 13999781 (Version 9)
Quarter: 2018Q2

REPORT INFORMATION
  Report Type: Spontaneous
  Country: JP (occurrence: JP)
  Receive Date: 20170922
  Receipt Date: 20180605
  Transmission Date: 20180711
  Serious: Yes (Other)
  Sender: FDA-Public Use
  Company Number: JP-AMGEN-JPNSP2017140928

PATIENT
  Age: 78 Year
  Sex: Male
  Weight: 60 kg

DRUGS (13)
  1. PLAVIX [Concomitant]
     Active Substance: CLOPIDOGREL BISULFATE
     Indication: POST PROCEDURAL COMPLICATION
     Dosage: 75 MG, QD (ONE EVERY MORNING)
     Dates: start: 20100323
  2. CHOLEBINE [Concomitant]
     Active Substance: COLESTILAN CHLORIDE
     Indication: HYPERCHOLESTEROLAEMIA
     Dosage: 500 G, BID (BEFORE BREAKFAST AND DINNER)
     Dates: start: 20150729
  3. BAYASPIRIN [Concomitant]
     Active Substance: ASPIRIN
     Dosage: 100 MG, QD (ONCE EVERY MORNING)
     Dates: start: 20090116
  4. REPATHA [Suspect]
     Active Substance: EVOLOCUMAB
     Indication: HYPERCHOLESTEROLAEMIA
     Dosage: 140 MG, Q2WK
     Route: 058
     Dates: start: 20170222, end: 20170823
  5. ARTIST [Concomitant]
     Active Substance: CARVEDILOL
     Indication: ANGINA PECTORIS
     Dosage: 1.25 MG, QD (ONCE EVERY MORNING)
     Dates: start: 20090116
  6. ARTIST [Concomitant]
     Active Substance: CARVEDILOL
     Indication: HYPERTENSION
  7. BAYASPIRIN [Concomitant]
     Active Substance: ASPIRIN
     Indication: POST PROCEDURAL COMPLICATION
     Dosage: 100 MG, QD (ONCE EVERY MORNING)
     Dates: start: 20090107
  8. AMLODIPIN [Concomitant]
     Active Substance: AMLODIPINE BESYLATE
     Indication: HYPERTENSION
     Dosage: 2.5 MG, QD (ONCE EVERY MORNING)
     Dates: start: 20090116
  9. FAMOTIDINE. [Concomitant]
     Active Substance: FAMOTIDINE
     Dosage: 10 MG, BID (BEFORE BREALFAST AND DINNER)
     Dates: start: 20160511
  10. ARTIST [Concomitant]
     Active Substance: CARVEDILOL
     Indication: POST PROCEDURAL COMPLICATION
  11. PLAVIX [Concomitant]
     Active Substance: CLOPIDOGREL BISULFATE
     Indication: ANGINA PECTORIS
     Dosage: 75 MG, QD (EVERY MORNING)
     Dates: start: 20100304
  12. FAMOTIDINE. [Concomitant]
     Active Substance: FAMOTIDINE
     Indication: POST PROCEDURAL COMPLICATION
     Dosage: 20 MG, UNK
     Dates: start: 20090325
  13. AMLODIPIN [Concomitant]
     Active Substance: AMLODIPINE BESYLATE
     Dosage: 5 MG, QD (ONCE EVERY MORNING)
     Dates: start: 20160511

REACTIONS (2)
  - Interstitial lung disease [Recovering/Resolving]
  - Cholelithiasis [Unknown]

NARRATIVE: CASE EVENT DATE: 20170906
